FAERS Safety Report 23492704 (Version 1)
Quarter: 2024Q1

REPORT INFORMATION
  Report Type: Spontaneous
  Country: GB (occurrence: GB)
  Receive Date: 20240207
  Receipt Date: 20240207
  Transmission Date: 20240410
  Serious: Yes (Hospitalization)
  Sender: FDA-Public Use
  Company Number: None

PATIENT
  Age: 95 Year
  Sex: Male

DRUGS (19)
  1. CLARITHROMYCIN [Suspect]
     Active Substance: CLARITHROMYCIN
     Route: 065
  2. QUININE SULFATE [Concomitant]
     Active Substance: QUININE SULFATE
  3. ALBUTEROL [Concomitant]
     Active Substance: ALBUTEROL
     Dosage: 2 PUFFS QDS,INHALER CFC FREE,
  4. FERROUS FUMARATE [Concomitant]
     Active Substance: FERROUS FUMARATE
  5. FINASTERIDE [Concomitant]
     Active Substance: FINASTERIDE
  6. CALCEOS [Concomitant]
     Active Substance: CALCIUM CARBONATE\CHOLECALCIFEROL
     Dosage: NOW ONLY TAKES ON ALTERNATE DAYS, 500MG/400UNIT,
  7. BUMETANIDE [Concomitant]
     Active Substance: BUMETANIDE
     Dosage: MORNING - DISCONTINUED, 1 MG DAILY
     Dates: start: 20230814
  8. ZOLPIDEM [Concomitant]
     Active Substance: ZOLPIDEM TARTRATE
     Dosage: AT NIGHT,
  9. OMEPRAZOLE [Concomitant]
     Active Substance: OMEPRAZOLE
     Dosage: BEFORE FOOD WHEN ON ASPIRIN - DISCONTINUED,
     Dates: start: 20230522
  10. ASPIRIN [Concomitant]
     Active Substance: ASPIRIN
  11. SENNA [Concomitant]
     Active Substance: SENNA LEAF\SENNOSIDES\SENNOSIDES A AND B
     Indication: Constipation
     Dosage: TIME INTERVAL: AS NECESSARY: TWO TO BE TAKEN AT NIGHT - ONLY USES PRN
     Dates: start: 20231024
  12. CETRABEN EMOLLIENT [Concomitant]
     Dosage: TIME INTERVAL: AS NECESSARY: APPLY
     Dates: start: 20230822
  13. BECLOMETHASONE DIPROPIONATE\FORMOTEROL FUMARATE [Concomitant]
     Active Substance: BECLOMETHASONE DIPROPIONATE\FORMOTEROL FUMARATE
     Dosage: ONE OR TWO PUFFS TO BE INHALED TWICE A DAY AND EXTRA PUFF WHEN BOUTS OF COUGH IN BETWEEN, 100MICR...
     Route: 055
  14. LANSOPRAZOLE [Concomitant]
     Active Substance: LANSOPRAZOLE
     Dosage: EACH MORNING WHEN ON ASPIRIN,
  15. CODEINE [Concomitant]
     Active Substance: CODEINE
     Dosage: 3 TO 4 TIMES
  16. MOVELAT [Concomitant]
     Dosage: TO BE MASSAGED TO THE AFFECTED AREA UP TO FOUR TIMES A DAY
  17. BECLOMETHASONE DIPROPIONATE [Concomitant]
     Active Substance: BECLOMETHASONE DIPROPIONATE
     Dosage: DISCONTINUED, QVAR,
     Dates: start: 20230717
  18. FOLIC ACID [Concomitant]
     Active Substance: FOLIC ACID
     Dosage: DISCONTINUED,
     Dates: start: 20230814
  19. ACETAMINOPHEN [Concomitant]
     Active Substance: ACETAMINOPHEN
     Dosage: TIME INTERVAL: AS NECESSARY: QDS

REACTIONS (1)
  - Partial seizures [Recovered/Resolved]
